FAERS Safety Report 13976961 (Version 1)
Quarter: 2017Q3

REPORT INFORMATION
  Report Type: Spontaneous
  Country: US (occurrence: US)
  Receive Date: 20170915
  Receipt Date: 20170915
  Transmission Date: 20171128
  Serious: No
  Sender: FDA-Public Use
  Company Number: US-ROCHE-693712

PATIENT
  Sex: Female

DRUGS (5)
  1. TYKERB [Suspect]
     Active Substance: LAPATINIB DITOSYLATE
     Indication: BREAST CANCER METASTATIC
     Route: 065
     Dates: start: 200809, end: 200811
  2. TYKERB [Suspect]
     Active Substance: LAPATINIB DITOSYLATE
     Route: 065
  3. XELODA [Suspect]
     Active Substance: CAPECITABINE
     Indication: BREAST CANCER METASTATIC
     Route: 065
     Dates: start: 200805, end: 200807
  4. HERCEPTIN [Suspect]
     Active Substance: TRASTUZUMAB
     Indication: BREAST CANCER METASTATIC
     Route: 065
     Dates: start: 200707, end: 200912
  5. TYKERB [Suspect]
     Active Substance: LAPATINIB DITOSYLATE
     Route: 065

REACTIONS (1)
  - Diarrhoea [Unknown]
